FAERS Safety Report 8004850-4 (Version None)
Quarter: 2011Q4

REPORT INFORMATION
  Report Type: 
  Country: None (occurrence: None)
  Receive Date: 20111223
  Receipt Date: 20111223
  Transmission Date: 20120403
  Serious: Yes (Other)
  Sender: FDA-Public Use
  Company Number: None

PATIENT
  Sex: Male
  Weight: 90.718 kg

DRUGS (1)
  1. MEFLOQUINE HYDROCHLORIDE [Suspect]
     Indication: MALARIA PROPHYLAXIS
     Dosage: UNKNOWN
     Route: 048
     Dates: start: 19921201, end: 19930401

REACTIONS (7)
  - BIPOLAR DISORDER [None]
  - ANGER [None]
  - DEPRESSION [None]
  - ANXIETY [None]
  - PARANOIA [None]
  - GASTROINTESTINAL DISORDER [None]
  - POST-TRAUMATIC STRESS DISORDER [None]
